FAERS Safety Report 23441990 (Version 2)
Quarter: 2024Q1

REPORT INFORMATION
  Report Type: Spontaneous
  Country: FR (occurrence: FR)
  Receive Date: 20240125
  Receipt Date: 20240223
  Transmission Date: 20240410
  Serious: No
  Sender: FDA-Public Use
  Company Number: FR-PFIZER INC-202400000799

PATIENT
  Sex: Male

DRUGS (2)
  1. SOMATROPIN [Suspect]
     Active Substance: SOMATROPIN
     Dosage: 1.4 MG ONE DAY AND THEN 1.6 MG THE OTHER DAY
  2. SOMATROPIN [Suspect]
     Active Substance: SOMATROPIN
     Dosage: 1.4 MG ONE DAY AND THEN 1.6 MG THE OTHER DAY

REACTIONS (2)
  - Device leakage [Unknown]
  - Accidental overdose [Unknown]

NARRATIVE: CASE EVENT DATE: 20231228
